FAERS Safety Report 9787762 (Version 1)
Quarter: 2013Q4

REPORT INFORMATION
  Report Type: Spontaneous
  Country: US (occurrence: None)
  Receive Date: 20131227
  Receipt Date: 20131227
  Transmission Date: 20140711
  Serious: Yes (Other)
  Sender: FDA-Public Use
  Company Number: None

PATIENT
  Age: 91 Year
  Sex: Male
  Weight: 86.18 kg

DRUGS (19)
  1. KEFLEX (CEPHALEXIN) [Suspect]
     Indication: INFECTION PROPHYLAXIS
     Route: 048
     Dates: start: 20131129, end: 20131206
  2. KEFLEX (CEPHALEXIN) [Suspect]
     Indication: MICROGRAPHIC SKIN SURGERY
     Route: 048
     Dates: start: 20131129, end: 20131206
  3. SUPPLEMENTS [Concomitant]
  4. VITS [Concomitant]
  5. COQ 10 [Concomitant]
  6. ALPHA LIPOIC ACID [Concomitant]
  7. MULTIVIT [Concomitant]
  8. OMEGA 3 [Concomitant]
  9. VIT C [Concomitant]
  10. ALPHA LIPOIC ACID [Concomitant]
  11. COQ10 [Concomitant]
  12. VITAMIN B12 [Concomitant]
  13. FOLIC ACID [Concomitant]
  14. ^NATURAL MADE ^ SUPER B-COMPLEX [Concomitant]
  15. OSTEO BI-FLEX W VIT D, GLUC./ CHOND. [Concomitant]
  16. CAL 333 MG/ZINC 5MG + D3 [Concomitant]
  17. CINNAMON [Concomitant]
  18. GINGER ROOT [Concomitant]
  19. NIACIN [Concomitant]

REACTIONS (3)
  - Rash macular [None]
  - Skin exfoliation [None]
  - Skin exfoliation [None]
